FAERS Safety Report 11642096 (Version 1)
Quarter: 2015Q4

REPORT INFORMATION
  Report Type: Spontaneous
  Country: US (occurrence: US)
  Receive Date: 20151019
  Receipt Date: 20151019
  Transmission Date: 20160304
  Serious: Yes (Other)
  Sender: FDA-Public Use
  Company Number: US-TEVA-601257USA

PATIENT
  Age: 46 Year
  Sex: Female

DRUGS (11)
  1. LOSARTAN POT [Concomitant]
  2. OXYCODONE [Concomitant]
     Active Substance: OXYCODONE
  3. GABAPENTIN. [Concomitant]
     Active Substance: GABAPENTIN
  4. VITAMIN D3 [Concomitant]
     Active Substance: CHOLECALCIFEROL
     Dates: start: 20120423
  5. CALCIUM [Concomitant]
     Active Substance: CALCIUM
     Dates: start: 20130423
  6. FAMCICLOVIR. [Concomitant]
     Active Substance: FAMCICLOVIR
  7. METOPROLOL [Concomitant]
     Active Substance: METOPROLOL
  8. LEVOTHYROXIN [Concomitant]
     Active Substance: LEVOTHYROXINE
  9. OXYCOD/APAP 5 [Concomitant]
  10. COPAXONE [Suspect]
     Active Substance: GLATIRAMER ACETATE
     Indication: MULTIPLE SCLEROSIS
     Route: 058
     Dates: start: 20120502
  11. METHYLPRED PAK [Concomitant]

REACTIONS (2)
  - Herpes zoster [Unknown]
  - Nasopharyngitis [Unknown]

NARRATIVE: CASE EVENT DATE: 20150901
